FAERS Safety Report 7451153-2 (Version None)
Quarter: 2011Q2

REPORT INFORMATION
  Report Type: 
  Country: None (occurrence: None)
  Receive Date: 20110429
  Receipt Date: 20110429
  Transmission Date: 20111010
  Serious: Yes (Hospitalization)
  Sender: FDA-Public Use
  Company Number: None

PATIENT
  Age: 49 Year
  Sex: Male
  Weight: 67.1324 kg

DRUGS (5)
  1. CISPLATIN [Suspect]
  2. NEULASTA [Suspect]
     Dosage: ON DAY 2
  3. VINBLASTINE SULFATE [Suspect]
     Indication: NEOPLASM MALIGNANT
  4. METHOTREXATE [Suspect]
     Indication: BLADDER DISORDER
     Dosage: CHEMO-ONCE EVERY 2 WEEKS
  5. DOXORUBICIN HCL [Suspect]

REACTIONS (3)
  - VOMITING [None]
  - BACK PAIN [None]
  - NAUSEA [None]
